FAERS Safety Report 9018679 (Version 2)
Quarter: 2013Q1

REPORT INFORMATION
  Report Type: Report from Study
  Country: NZ (occurrence: NZ)
  Receive Date: 20130118
  Receipt Date: 20130215
  Transmission Date: 20140127
  Serious: Yes (Life-Threatening, Hospitalization, Other)
  Sender: FDA-Public Use
  Company Number: PHHY2013NZ004482

PATIENT
  Age: 54 Year
  Sex: Female

DRUGS (10)
  1. CLOZARIL [Suspect]
     Indication: SCHIZOPHRENIA
     Dosage: 200 MG (NOCTE)
     Route: 048
     Dates: start: 20100426
  2. CHLORAZEPAM [Concomitant]
     Dosage: UNK UKN, UNK
     Route: 048
  3. CITALOPRAM [Concomitant]
     Dosage: UNK UKN, UNK
  4. SIMVASTATIN [Concomitant]
     Dosage: UNK UKN, UNK
  5. CILAZAPRIL [Concomitant]
     Dosage: UNK UKN, UNK
  6. OMEPRAZOLE [Concomitant]
     Dosage: UNK UKN, UNK
  7. CLONAZEPAM [Concomitant]
     Route: 048
  8. SODIUM VALPROATE [Concomitant]
  9. LEVOTHYROXINE [Concomitant]
  10. METFORMIN [Concomitant]

REACTIONS (9)
  - Sepsis [Recovering/Resolving]
  - Renal impairment [Unknown]
  - White blood cell count increased [Recovering/Resolving]
  - Neutrophil count increased [Recovering/Resolving]
  - Malaise [Unknown]
  - Hypotension [Unknown]
  - Body temperature increased [Unknown]
  - Biliary sepsis [Unknown]
  - Liver function test abnormal [Unknown]
